FAERS Safety Report 14999074 (Version 1)
Quarter: 2018Q2

REPORT INFORMATION
  Report Type: Spontaneous
  Country: DE (occurrence: DE)
  Receive Date: 20180612
  Receipt Date: 20180612
  Transmission Date: 20180711
  Serious: Yes (Hospitalization)
  Sender: FDA-Public Use
  Company Number: DE-ESPERO PHARMACEUTICALS-ESP201806-000030

PATIENT
  Age: 86 Year
  Sex: Male

DRUGS (15)
  1. FORMOTEROL [Concomitant]
     Active Substance: FORMOTEROL
     Dosage: 1-0-1-0
  2. NEBIVOLOL. [Concomitant]
     Active Substance: NEBIVOLOL
     Dosage: 1-0-0-0
  3. METAMIZOLE [Concomitant]
     Active Substance: METAMIZOLE
  4. OMEPRAZOLE. [Concomitant]
     Active Substance: OMEPRAZOLE
     Dosage: 0-0-1-0
  5. ALLOPURINOL. [Concomitant]
     Active Substance: ALLOPURINOL
     Dosage: 0-0-1-0
  6. ACETYLSALICYLIC ACID [Concomitant]
     Active Substance: ASPIRIN
     Dosage: 0-1-0-0
  7. TAMSULOSIN [Concomitant]
     Active Substance: TAMSULOSIN
     Dosage: 0-0-1-0
  8. SALBUTAMOL [Concomitant]
     Active Substance: ALBUTEROL
  9. THEOPHYLLINE [Concomitant]
     Active Substance: THEOPHYLLINE ANHYDROUS
     Dosage: 1-0-0-0
  10. TRIMIPRAMINE [Concomitant]
     Active Substance: TRIMIPRAMINE
     Dosage: 0-0-1-0
  11. NITROGLYCERIN. [Suspect]
     Active Substance: NITROGLYCERIN
     Dosage: 3 PUFFS
     Route: 060
  12. RAMIPRIL HYDROCHLOROTHIAZIDE [Concomitant]
     Dosage: 5/25 MG, 1-0-0-0
  13. EZETIMIB SIMVASTATIN [Concomitant]
     Dosage: 20/10 MG , 0-0-1-0
  14. TORASEMIDE [Concomitant]
     Active Substance: TORSEMIDE
     Dosage: 1-0-0-0
  15. TIOTROPIUM BROMIDE [Concomitant]
     Active Substance: TIOTROPIUM BROMIDE

REACTIONS (4)
  - Circulatory collapse [Unknown]
  - Syncope [Unknown]
  - Contraindicated product administered [Unknown]
  - Hypotension [Unknown]
